FAERS Safety Report 4451350-4 (Version None)
Quarter: 2004Q3

REPORT INFORMATION
  Report Type: 
  Country: None (occurrence: None)
  Receive Date: 20040916
  Receipt Date: 20030815
  Transmission Date: 20050211
  Serious: Yes (Hospitalization)
  Sender: FDA-Public Use
  Company Number: CH-MERCK-0308CHE00024

PATIENT
  Age: 46 Year
  Sex: Male
  Weight: 95 kg

DRUGS (9)
  1. ALBUTEROL [Concomitant]
     Indication: ASTHMA
     Route: 055
  2. BUDESONIDE AND FORMOTEROL FUMARATE [Concomitant]
     Indication: ASTHMA
     Route: 055
     Dates: end: 20030205
  3. HYDROXYZINE HYDROCHLORIDE [Concomitant]
     Indication: ASTHMA
     Route: 048
  4. SINGULAIR [Suspect]
     Indication: ASTHMA
     Route: 048
     Dates: start: 20021201, end: 20030131
  5. SINGULAIR [Suspect]
     Route: 048
     Dates: start: 20010901, end: 20011101
  6. OMEPRAZOLE [Concomitant]
     Indication: GASTRIC DISORDER
     Route: 048
  7. PREDNISONE [Concomitant]
     Indication: ASTHMA
     Route: 048
     Dates: start: 20020101, end: 20020901
  8. PREDNISONE [Concomitant]
     Route: 048
     Dates: start: 20020901
  9. ZOLPIDEM TARTRATE [Concomitant]
     Indication: SLEEP DISORDER
     Route: 048

REACTIONS (28)
  - ABDOMINAL PAIN [None]
  - ALLERGIC GRANULOMATOUS ANGIITIS [None]
  - ASTHMA [None]
  - BLOOD ALBUMIN DECREASED [None]
  - BLOOD LACTATE DEHYDROGENASE INCREASED [None]
  - BRAIN NATRIURETIC PEPTIDE INCREASED [None]
  - CARDIOMEGALY [None]
  - CHEST PAIN [None]
  - COUGH [None]
  - CREPITATIONS [None]
  - DYSPNOEA [None]
  - EJECTION FRACTION DECREASED [None]
  - ELECTROCARDIOGRAM Q WAVES [None]
  - ELECTROCARDIOGRAM ST SEGMENT ABNORMAL [None]
  - ELECTROCARDIOGRAM ST SEGMENT ELEVATION [None]
  - HEART RATE INCREASED [None]
  - HEPATOJUGULAR REFLUX [None]
  - HYPOKINESIA [None]
  - LUNG INFILTRATION [None]
  - MITRAL VALVE INCOMPETENCE [None]
  - NASAL CONGESTION [None]
  - ORTHOPNOEA [None]
  - PERICARDIAL EFFUSION [None]
  - RESPIRATORY DISORDER [None]
  - TROPONIN I INCREASED [None]
  - URTICARIA [None]
  - VASCULITIS NECROTISING [None]
  - VENTRICULAR DYSFUNCTION [None]
